FAERS Safety Report 5377863-9 (Version None)
Quarter: 2007Q2

REPORT INFORMATION
  Report Type: 
  Country: None (occurrence: None)
  Receive Date: 20070629
  Receipt Date: 20070621
  Transmission Date: 20071010
  Serious: Yes (Death, Life-Threatening, Other)
  Sender: FDA-Public Use
  Company Number: 2007SP009358

PATIENT
  Age: 61 Year
  Sex: Female
  Weight: 72.5755 kg

DRUGS (6)
  1. EPTIFIBATIDE (S-P) [Suspect]
     Indication: DRUG USE FOR UNKNOWN INDICATION
     Dosage: ; UNK; IV
     Route: 042
     Dates: start: 20070411, end: 20070411
  2. LOVENOX [Suspect]
     Indication: DRUG USE FOR UNKNOWN INDICATION
     Dosage: 0.5 MG/KG; ; SC
     Route: 058
     Dates: start: 20070401, end: 20070411
  3. AMIODARONE HCL [Concomitant]
  4. DOPAMINE HCL [Concomitant]
  5. CARDENE [Concomitant]
  6. VISIPAQUE [Concomitant]

REACTIONS (5)
  - CARDIAC PROCEDURE COMPLICATION [None]
  - CARDIO-RESPIRATORY ARREST [None]
  - CATHETER RELATED COMPLICATION [None]
  - CORONARY ARTERY THROMBOSIS [None]
  - DRUG INEFFECTIVE [None]
